FAERS Safety Report 9680827 (Version 1)
Quarter: 2013Q4

REPORT INFORMATION
  Report Type: Spontaneous
  Country: US (occurrence: None)
  Receive Date: 20131108
  Receipt Date: 20131108
  Transmission Date: 20140711
  Serious: Yes (Life-Threatening, Hospitalization, Disabling, Other)
  Sender: FDA-Public Use
  Company Number: None

PATIENT
  Age: 47 Year
  Sex: Female
  Weight: 53.52 kg

DRUGS (10)
  1. ZEMPLAR [Suspect]
     Indication: BLOOD PARATHYROID HORMONE
     Dosage: 2 MCG AND THEN 1 MCG 3X^S WEEK
     Route: 042
     Dates: start: 201306, end: 201308
  2. LABETALOL [Concomitant]
  3. NORVAS [Concomitant]
  4. VITAMIN B + C COMPLEX [Concomitant]
  5. TUMS ANTACID [Concomitant]
  6. XANAX [Concomitant]
  7. BABY ASPIRIN [Concomitant]
  8. OMEGA 3 [Concomitant]
  9. EPEOGEN [Concomitant]
  10. IRON [Concomitant]

REACTIONS (6)
  - Oedema [None]
  - Blood phosphorus abnormal [None]
  - Blood parathyroid hormone abnormal [None]
  - Blood calcium abnormal [None]
  - Refusal of treatment by patient [None]
  - Foot fracture [None]
